FAERS Safety Report 14554276 (Version 1)
Quarter: 2018Q1

REPORT INFORMATION
  Report Type: Spontaneous
  Country: US (occurrence: US)
  Receive Date: 20180220
  Receipt Date: 20180220
  Transmission Date: 20180509
  Serious: No
  Sender: FDA-Public Use
  Company Number: US-BAUSCH-BL-2018-001314

PATIENT
  Sex: Female

DRUGS (2)
  1. VYZULTA [Suspect]
     Active Substance: LATANOPROSTENE BUNOD
     Indication: PRODUCT USED FOR UNKNOWN INDICATION
     Dosage: 1 DROP AT NIGHT
     Route: 065
     Dates: start: 20180108
  2. VYZULTA [Suspect]
     Active Substance: LATANOPROSTENE BUNOD
     Dosage: 1 DROP AT NIGHT: SECOND DROP
     Dates: start: 20180109, end: 201801

REACTIONS (6)
  - Eye pain [Unknown]
  - Corneal disorder [Unknown]
  - Conjunctival hyperaemia [Unknown]
  - Photophobia [Unknown]
  - Eye irritation [Unknown]
  - Ocular hyperaemia [Unknown]

NARRATIVE: CASE EVENT DATE: 201801
